FAERS Safety Report 21365020 (Version 1)
Quarter: 2022Q3

REPORT INFORMATION
  Report Type: Spontaneous
  Country: US (occurrence: None)
  Receive Date: 20220922
  Receipt Date: 20220922
  Transmission Date: 20221026
  Serious: No
  Sender: FDA-Public Use
  Company Number: None

PATIENT
  Age: 79 Year
  Sex: Male
  Weight: 93.9 kg

DRUGS (4)
  1. LACOSAMIDE [Suspect]
     Active Substance: LACOSAMIDE
     Indication: Seizure
     Dosage: FREQUENCY : AT BEDTIME;?
     Route: 048
     Dates: start: 20220728, end: 20220812
  2. PHENYTOIN [Concomitant]
     Active Substance: PHENYTOIN
  3. PRIMIDONE [Concomitant]
     Active Substance: PRIMIDONE
  4. SERTRALINE [Concomitant]
     Active Substance: SERTRALINE HYDROCHLORIDE

REACTIONS (9)
  - Muscular weakness [None]
  - Tremor [None]
  - Fall [None]
  - Confusional state [None]
  - Percutaneous coronary intervention [None]
  - Post procedural complication [None]
  - Disorientation [None]
  - Computerised tomogram abnormal [None]
  - Cerebrovascular arteriovenous malformation [None]

NARRATIVE: CASE EVENT DATE: 20220811
